FAERS Safety Report 12843407 (Version 5)
Quarter: 2016Q4

REPORT INFORMATION
  Report Type: Spontaneous
  Country: IT (occurrence: IT)
  Receive Date: 20161013
  Receipt Date: 20161117
  Transmission Date: 20170207
  Serious: Yes (Death, Other)
  Sender: FDA-Public Use
  Company Number: IT-TEVA-699550ACC

PATIENT
  Age: 40 Year
  Sex: Male

DRUGS (4)
  1. BUTANE [Interacting]
     Active Substance: BUTANE
     Indication: PRODUCT USED FOR UNKNOWN INDICATION
     Route: 065
  2. CITALOPRAM [Suspect]
     Active Substance: CITALOPRAM HYDROBROMIDE
     Indication: MENTAL DISORDER
     Route: 065
  3. CHLORPROMAZINE. [Interacting]
     Active Substance: CHLORPROMAZINE
     Indication: MENTAL DISORDER
     Route: 065
  4. PROPANE [Interacting]
     Active Substance: PROPANE
     Indication: PRODUCT USED FOR UNKNOWN INDICATION
     Route: 065

REACTIONS (10)
  - Drug-disease interaction [Fatal]
  - Electrocardiogram QT prolonged [Fatal]
  - Loss of consciousness [Fatal]
  - Gas poisoning [Fatal]
  - Arrhythmia [Fatal]
  - Long QT syndrome [Fatal]
  - Torsade de pointes [Fatal]
  - Potentiating drug interaction [Fatal]
  - Drug interaction [Fatal]
  - Pulmonary oedema [Fatal]
